FAERS Safety Report 11815353 (Version 2)
Quarter: 2016Q1

REPORT INFORMATION
  Report Type: Spontaneous
  Country: JP (occurrence: JP)
  Receive Date: 20151209
  Receipt Date: 20160119
  Transmission Date: 20160525
  Serious: Yes (Other)
  Sender: FDA-Public Use
  Company Number: JP-SA-2015SA203848

PATIENT
  Age: 10 Year
  Sex: Female

DRUGS (2)
  1. L-PAM [Suspect]
     Active Substance: MELPHALAN
     Route: 065
  2. FLUDARABINE PHOSPHATE. [Suspect]
     Active Substance: FLUDARABINE PHOSPHATE
     Route: 065

REACTIONS (3)
  - Product use issue [Unknown]
  - Anti-Muellerian hormone level decreased [Unknown]
  - Reproductive toxicity [Unknown]
